FAERS Safety Report 6959077-1 (Version None)
Quarter: 2010Q3

REPORT INFORMATION
  Report Type: 
  Country: None (occurrence: None)
  Receive Date: 20100831
  Receipt Date: 20100820
  Transmission Date: 20110219
  Serious: Yes (Hospitalization)
  Sender: FDA-Public Use
  Company Number: US-WYE-H14293610

PATIENT
  Age: 68 Year
  Sex: Female
  Weight: 66.36 kg

DRUGS (13)
  1. TORISEL [Suspect]
     Indication: ENDOMETRIAL CANCER
     Route: 042
     Dates: start: 20090423
  2. MAGNESIUM [Concomitant]
  3. COLESTIPOL HYDROCHLORIDE [Concomitant]
  4. LIPITOR [Concomitant]
  5. POTASSIUM [Concomitant]
  6. VITAMIN D [Concomitant]
  7. LORAZEPAM [Concomitant]
  8. LORTAB [Concomitant]
  9. REGLAN [Concomitant]
  10. AMBIEN [Concomitant]
  11. BONIVA [Concomitant]
  12. LOVENOX [Concomitant]
     Indication: PULMONARY EMBOLISM
  13. IMODIUM [Concomitant]

REACTIONS (3)
  - DEHYDRATION [None]
  - NAUSEA [None]
  - VOMITING [None]
